FAERS Safety Report 7718513-3 (Version None)
Quarter: 2011Q3

REPORT INFORMATION
  Report Type: 
  Country: None (occurrence: None)
  Receive Date: 20110830
  Receipt Date: 20110826
  Transmission Date: 20111222
  Serious: Yes (Other)
  Sender: FDA-Public Use
  Company Number: US-PFIZER INC-2011199402

PATIENT
  Age: 7 Year

DRUGS (1)
  1. CHILDREN'S ADVIL COLD [Suspect]
     Dosage: UNK

REACTIONS (2)
  - SWELLING FACE [None]
  - RASH [None]
